FAERS Safety Report 23935318 (Version 2)
Quarter: 2024Q2

REPORT INFORMATION
  Report Type: Spontaneous
  Country: FR (occurrence: FR)
  Receive Date: 20240604
  Receipt Date: 20240614
  Transmission Date: 20240715
  Serious: Yes (Life-Threatening, Other)
  Sender: FDA-Public Use
  Company Number: FR-ROCHE-2931056

PATIENT
  Age: 67 Year
  Sex: Female
  Weight: 87 kg

DRUGS (25)
  1. CARBOPLATIN [Suspect]
     Active Substance: CARBOPLATIN
     Indication: Non-small cell lung cancer
     Dosage: ON 05/JUL/2021, SHE RECEIVED MOST RECENT DOSE OF STUDY DRUG CARBOPLATIN PRIOR TO SAE AT 630 MG.
     Route: 042
     Dates: start: 20210429
  2. PEMETREXED [Suspect]
     Active Substance: PEMETREXED
     Indication: Non-small cell lung cancer
     Dosage: ON 05/JUL/2021, SHE RECEIVED MOST RECENT DOSE OF STUDY DRUG PEMETREXED PRIOR TO SAE AT 1000 MG
     Route: 042
     Dates: start: 20210429
  3. ATEZOLIZUMAB [Concomitant]
     Active Substance: ATEZOLIZUMAB
     Dosage: ON 05/JUL/2021, SHE RECEIVED MOST RECENT DOSE OF STUDY DRUG PRIOR TO SAE.ON 23/JUL/2021, SHE RECEIVE
     Route: 065
     Dates: start: 20210429
  4. ATEZOLIZUMAB [Concomitant]
     Active Substance: ATEZOLIZUMAB
     Dosage: ON 05/JUL/2021, SHE RECEIVED MOST RECENT DOSE OF STUDY DRUG PRIOR TO SAE.ON 23/JUL/2021, SHE RECEIVE
     Route: 065
     Dates: start: 20210429
  5. ATEZOLIZUMAB [Concomitant]
     Active Substance: ATEZOLIZUMAB
     Indication: Non-small cell lung cancer
     Dosage: UNK
     Route: 065
  6. ATEZOLIZUMAB [Concomitant]
     Active Substance: ATEZOLIZUMAB
     Route: 065
  7. DESLORATADINE [Concomitant]
     Active Substance: DESLORATADINE
     Indication: Rash
     Dosage: 0.5 MG
     Route: 065
     Dates: start: 20210520
  8. DESLORATADINE [Concomitant]
     Active Substance: DESLORATADINE
     Dosage: 0.500MG
     Route: 065
     Dates: start: 20210520
  9. Dexeryl [Concomitant]
     Indication: Xerosis
     Dosage: UNK
     Route: 065
     Dates: start: 20210513
  10. FLUTICASONE PROPIONATE\FORMOTEROL FUMARATE [Concomitant]
     Active Substance: FLUTICASONE PROPIONATE\FORMOTEROL FUMARATE
     Indication: Bronchitis chronic
     Dosage: 2 INHALATION
     Route: 065
  11. FLUTICASONE PROPIONATE\FORMOTEROL FUMARATE [Concomitant]
     Active Substance: FLUTICASONE PROPIONATE\FORMOTEROL FUMARATE
     Dosage: 2 INHALATION
     Route: 065
  12. IMOVANE [Concomitant]
     Active Substance: ZOPICLONE
     Indication: Insomnia
     Dosage: 7.5 MG
     Route: 065
     Dates: start: 20210703
  13. IMOVANE [Concomitant]
     Active Substance: ZOPICLONE
     Dosage: 7.500MG
     Route: 065
     Dates: start: 20210703
  14. MOVICOL [Concomitant]
     Active Substance: POLYETHYLENE GLYCOL 3350\POTASSIUM CHLORIDE\SODIUM BICARBONATE\SODIUM CHLORIDE
     Indication: Constipation
     Dosage: UNK
     Route: 065
     Dates: start: 20210611
  15. PEMBROLIZUMAB [Concomitant]
     Active Substance: PEMBROLIZUMAB
     Dosage: ON 05-JUL-2021, SHE RECEIVED THE MOST RECENT DOSE PRIOR TO SAE.ON 23/JUL/2021,  SHE RECEIVED THE MOS
     Route: 065
     Dates: start: 20210429
  16. PEMBROLIZUMAB [Concomitant]
     Active Substance: PEMBROLIZUMAB
     Dosage: ON 05-JUL-2021, SHE RECEIVED THE MOST RECENT DOSE PRIOR TO SAE.ON 23/JUL/2021,  SHE RECEIVED THE MOS
     Route: 065
     Dates: start: 20210429
  17. PEMBROLIZUMAB [Concomitant]
     Active Substance: PEMBROLIZUMAB
     Indication: Non-small cell lung cancer
     Dosage: UNK
     Route: 065
  18. PEMBROLIZUMAB [Concomitant]
     Active Substance: PEMBROLIZUMAB
     Route: 065
  19. PRIMPERAN [Concomitant]
     Active Substance: METOCLOPRAMIDE HYDROCHLORIDE
     Indication: Nausea
     Dosage: 10 MG
     Route: 065
     Dates: start: 202104
  20. PRIMPERAN [Concomitant]
     Active Substance: METOCLOPRAMIDE HYDROCHLORIDE
     Dosage: 10.000MG
     Route: 065
     Dates: start: 202104
  21. TIOTROPIUM [Concomitant]
     Active Substance: TIOTROPIUM
     Indication: Bronchitis chronic
     Dosage: UNK
     Route: 065
  22. TIRAGOLUMAB [Concomitant]
     Active Substance: TIRAGOLUMAB
     Indication: Non-small cell lung cancer
     Dosage: UNK
     Route: 065
  23. TIRAGOLUMAB [Concomitant]
     Active Substance: TIRAGOLUMAB
     Route: 065
  24. TIRAGOLUMAB [Concomitant]
     Active Substance: TIRAGOLUMAB
     Dosage: ON 05/JUL/2021, SHE RECEIVED MOST RECENT DOSE OF STUDY DRUG PRIOR TO SAE.ON 23/JUL/2021, SHE RECEIVE
     Route: 065
     Dates: start: 20210429
  25. TIRAGOLUMAB [Concomitant]
     Active Substance: TIRAGOLUMAB
     Dosage: ON 19/JUL/2021, SHE RECEIVED MOST RECENT DOSE OF STUDY DRUG PRIOR TO AE.ON 23/JUL/2021, SHE RECEIVED
     Route: 065
     Dates: start: 20210429

REACTIONS (2)
  - Thrombocytopenia [Recovered/Resolved]
  - Neutropenia [Recovered/Resolved]

NARRATIVE: CASE EVENT DATE: 20210719
